FAERS Safety Report 8544528-1 (Version None)
Quarter: 2012Q3

REPORT INFORMATION
  Report Type: 
  Country: None (occurrence: None)
  Receive Date: 20120727
  Receipt Date: 20120722
  Transmission Date: 20120928
  Serious: No
  Sender: FDA-Public Use
  Company Number: US-PFIZER INC-2012125225

PATIENT
  Sex: Female
  Weight: 52.154 kg

DRUGS (1)
  1. ADVIL PM [Suspect]
     Indication: SLEEP DISORDER
     Dosage: 200/38MG, ONCE A DAY
     Route: 048
     Dates: start: 20120501

REACTIONS (1)
  - DRUG INEFFECTIVE [None]
